FAERS Safety Report 12695309 (Version 1)
Quarter: 2016Q3

REPORT INFORMATION
  Report Type: Spontaneous
  Country: JP (occurrence: JP)
  Receive Date: 20160829
  Receipt Date: 20160829
  Transmission Date: 20161109
  Serious: Yes (Hospitalization)
  Sender: FDA-Public Use
  Company Number: JP-DSJP-DSJ-2016-128460AA

PATIENT

DRUGS (1)
  1. LIXIANA TABLETS 30MG [Suspect]
     Active Substance: EDOXABAN TOSILATE MONOHYDRATE
     Indication: PRODUCT USED FOR UNKNOWN INDICATION
     Dosage: 30 MG, QD
     Route: 048

REACTIONS (1)
  - Cerebral infarction [Unknown]
